FAERS Safety Report 5467487-7 (Version None)
Quarter: 2007Q3

REPORT INFORMATION
  Report Type: 
  Country: None (occurrence: None)
  Receive Date: 20070925
  Receipt Date: 20070913
  Transmission Date: 20080115
  Serious: Yes (Other)
  Sender: FDA-Public Use
  Company Number: FR-PFIZER INC-2007077143

PATIENT
  Age: 37 Year
  Sex: Female

DRUGS (4)
  1. MISOPROSTOL [Suspect]
     Dates: start: 20070302, end: 20070302
  2. MIFEPRISTONE [Suspect]
     Dates: start: 20070228, end: 20070228
  3. DICLOFENAC SODIUM [Concomitant]
     Route: 054
     Dates: start: 20070302, end: 20070302
  4. SOTALOL HYDROCHLORIDE [Concomitant]
     Indication: HYPERTENSION

REACTIONS (2)
  - DRUG INEFFECTIVE FOR UNAPPROVED INDICATION [None]
  - INDUCED ABORTION FAILED [None]
